FAERS Safety Report 21268042 (Version 1)
Quarter: 2022Q3

REPORT INFORMATION
  Report Type: Spontaneous
  Country: FR (occurrence: FR)
  Receive Date: 20220829
  Receipt Date: 20220829
  Transmission Date: 20221027
  Serious: Yes (Disabling)
  Sender: FDA-Public Use
  Company Number: FR-AMGEN-FRASP2022145611

PATIENT
  Age: 49 Year
  Sex: Male

DRUGS (2)
  1. ADALIMUMAB [Suspect]
     Active Substance: ADALIMUMAB
     Indication: Undifferentiated spondyloarthritis
     Dosage: 40 MILLIGRAM, Q2WK
     Route: 065
  2. Ghemaxan [Concomitant]

REACTIONS (1)
  - Ankle fracture [Unknown]
